FAERS Safety Report 4710171-5 (Version None)
Quarter: 2005Q3

REPORT INFORMATION
  Report Type: 
  Country: None (occurrence: None)
  Receive Date: 20050707
  Receipt Date: 20050624
  Transmission Date: 20060218
  Serious: Yes (Other)
  Sender: FDA-Public Use
  Company Number: 2005092232

PATIENT
  Sex: Male

DRUGS (4)
  1. DILANTIN [Suspect]
     Indication: ILL-DEFINED DISORDER
  2. LAMOTRIGINE [Suspect]
     Indication: CONVULSION
     Dosage: ORAL
     Route: 048
  3. SIMVASTATIN [Concomitant]
  4. TAMSULOSIN HYDROCHLORIDE [Concomitant]

REACTIONS (4)
  - CONVULSION [None]
  - COORDINATION ABNORMAL [None]
  - DRUG TOXICITY [None]
  - NERVOUS SYSTEM DISORDER [None]
